FAERS Safety Report 6446190-0 (Version None)
Quarter: 2009Q4

REPORT INFORMATION
  Report Type: 
  Country: None (occurrence: None)
  Receive Date: 20091119
  Receipt Date: 20091110
  Transmission Date: 20100525
  Serious: Yes (Hospitalization)
  Sender: FDA-Public Use
  Company Number: US-JNJFOC-20091103703

PATIENT
  Sex: Female
  Weight: 133.36 kg

DRUGS (5)
  1. DURAGESIC-100 [Suspect]
     Indication: ARTHRALGIA
     Route: 062
     Dates: start: 20030101, end: 20091109
  2. KLONOPIN [Concomitant]
     Indication: PANIC ATTACK
     Route: 048
  3. HYDROCODONE [Concomitant]
     Indication: PAIN
     Dosage: 7.5/650 MG
     Route: 048
  4. GLIPIZIDE [Concomitant]
     Indication: DIABETES MELLITUS
     Dosage: 7.5/650 MG
     Route: 048
  5. INHALER [Concomitant]
     Route: 048

REACTIONS (5)
  - BLOOD PRESSURE FLUCTUATION [None]
  - HEART RATE IRREGULAR [None]
  - PYREXIA [None]
  - RENAL DISORDER [None]
  - WRONG TECHNIQUE IN DRUG USAGE PROCESS [None]
